FAERS Safety Report 12744425 (Version 1)
Quarter: 2016Q3

REPORT INFORMATION
  Report Type: Spontaneous
  Country: US (occurrence: US)
  Receive Date: 20160914
  Receipt Date: 20160914
  Transmission Date: 20161109
  Serious: No
  Sender: FDA-Public Use
  Company Number: US-JAZZ-2016-US-009177

PATIENT
  Sex: Female

DRUGS (44)
  1. XYREM [Suspect]
     Active Substance: SODIUM OXYBATE
     Indication: SOMNOLENCE
     Dosage: 2.25 G, BID
     Route: 048
     Dates: start: 201506, end: 201506
  2. SERTRALINE [Concomitant]
     Active Substance: SERTRALINE HYDROCHLORIDE
  3. OMEGA-3 ACIDS [Concomitant]
     Active Substance: OMEGA-3 FATTY ACIDS
  4. TRAMADOL HCL [Concomitant]
     Active Substance: TRAMADOL HYDROCHLORIDE
  5. ARTEMISIA COMBINATION [Concomitant]
     Active Substance: HERBALS
  6. ASHWAGANDHA [Concomitant]
     Active Substance: HERBALS
  7. FISH OIL NATURE MADE [Concomitant]
  8. MAGNESIUM [Concomitant]
     Active Substance: MAGNESIUM
  9. PROBIOTICA [Concomitant]
     Active Substance: PROBIOTICS NOS
  10. SAMENTO NUTRAMEDIX [Concomitant]
  11. HYDROCODONE/ACETAMINOPHEN [Concomitant]
     Active Substance: ACETAMINOPHEN\HYDROCODONE
  12. IBUPROFEN. [Concomitant]
     Active Substance: IBUPROFEN
  13. CALCIUM [Concomitant]
     Active Substance: CALCIUM
  14. XANAX [Concomitant]
     Active Substance: ALPRAZOLAM
  15. GAS-X MAX STRENGTH [Concomitant]
  16. AMBIEN [Concomitant]
     Active Substance: ZOLPIDEM TARTRATE
  17. PROMETHAZINE [Concomitant]
     Active Substance: PROMETHAZINE\PROMETHAZINE HYDROCHLORIDE
  18. ELEUTHERO [Concomitant]
     Active Substance: ELEUTHERO
  19. MULTIVITAMINS [Concomitant]
     Active Substance: VITAMINS
  20. ASPIRIN. [Concomitant]
     Active Substance: ASPIRIN
  21. XYREM [Suspect]
     Active Substance: SODIUM OXYBATE
     Dosage: DOSE ADJUSTMENTS
     Route: 048
  22. XYREM [Suspect]
     Active Substance: SODIUM OXYBATE
     Dosage: 4.5 G, BID
     Route: 048
     Dates: start: 201602
  23. MELATONIN [Concomitant]
     Active Substance: MELATONIN
  24. SONATA [Concomitant]
     Active Substance: ZALEPLON
  25. GABAPENTIN. [Concomitant]
     Active Substance: GABAPENTIN
  26. HYDROCHLOROTHIAZIDE. [Concomitant]
     Active Substance: HYDROCHLOROTHIAZIDE
  27. ZINC CHELATE [Concomitant]
  28. VITAMIN D3 [Concomitant]
     Active Substance: CHOLECALCIFEROL
  29. NATURE-THROID [Concomitant]
     Active Substance: THYROID, PORCINE
  30. VOLTAREN [Concomitant]
     Active Substance: DICLOFENAC SODIUM
  31. COLACE [Concomitant]
     Active Substance: DOCUSATE SODIUM
  32. LIPOSOMAL GLUTATHIONE [Concomitant]
  33. PROVIGIL [Concomitant]
     Active Substance: MODAFINIL
  34. VITAMIN D [Concomitant]
     Active Substance: CHOLECALCIFEROL
  35. DHEA [Concomitant]
     Active Substance: PRASTERONE
  36. TUMS EX [Concomitant]
     Active Substance: CALCIUM CARBONATE
  37. XANAX [Concomitant]
     Active Substance: ALPRAZOLAM
  38. DHEA [Concomitant]
     Active Substance: PRASTERONE
  39. THYROID [Concomitant]
     Active Substance: LEVOTHYROXINE\LIOTHYRONINE
  40. DEPLIN [Concomitant]
     Active Substance: LEVOMEFOLATE CALCIUM
  41. DEPLIN [Concomitant]
     Active Substance: LEVOMEFOLATE CALCIUM
  42. POTASSIUM CHLORIDE. [Concomitant]
     Active Substance: POTASSIUM CHLORIDE
  43. HYDROCODONE/ACETAMINOPHEN [Concomitant]
     Active Substance: ACETAMINOPHEN\HYDROCODONE
  44. IBUPROFEN. [Concomitant]
     Active Substance: IBUPROFEN

REACTIONS (1)
  - Alopecia [Unknown]
